FAERS Safety Report 21237579 (Version 4)
Quarter: 2022Q4

REPORT INFORMATION
  Report Type: Report from Study
  Country: US (occurrence: US)
  Receive Date: 20220822
  Receipt Date: 20221205
  Transmission Date: 20230113
  Serious: Yes (Other)
  Sender: FDA-Public Use
  Company Number: US-ABBVIE-22K-163-4511923-00

PATIENT
  Sex: Male
  Weight: 77.11 kg

DRUGS (23)
  1. IMBRUVICA [Suspect]
     Active Substance: IBRUTINIB
     Indication: Chronic lymphocytic leukaemia
     Route: 048
     Dates: start: 201807
  2. IMBRUVICA [Suspect]
     Active Substance: IBRUTINIB
     Indication: Chronic lymphocytic leukaemia
     Route: 048
     Dates: start: 201609
  3. ADEFOVIR [Concomitant]
     Active Substance: ADEFOVIR
     Indication: Chronic hepatitis B
  4. AMIODARONE [Concomitant]
     Active Substance: AMIODARONE
     Indication: Product used for unknown indication
     Dosage: 200MG
     Route: 048
  5. AMIODARONE [Concomitant]
     Active Substance: AMIODARONE
     Indication: Product used for unknown indication
     Dosage: 200MG TABLET - TAKE 1 TABLET (200 MG TOTAL) BY MOUTH DAILY.
  6. CALCIUM CITRATE\VITAMIN D [Concomitant]
     Active Substance: CALCIUM CITRATE\VITAMIN D
     Indication: Product used for unknown indication
     Dosage: 315-200 MG-UNIT PER TABLET - TAKE 1 TABLET BY MOUTH
  7. LISINOPRIL [Concomitant]
     Active Substance: LISINOPRIL
     Indication: Product used for unknown indication
     Dosage: 5MG TABLET- TAKE 1 TABLET (5 MG TOTAL) BY MOUTH DAILY
  8. METOPROLOL TARTRATE [Concomitant]
     Active Substance: METOPROLOL TARTRATE
     Indication: Product used for unknown indication
     Dosage: 50MG TABLET- TAKE 1 TABLET (50 MG TOTAL) BY MOUTH 2 (TWO) TIMES A DAY
  9. TACROLIMUS [Concomitant]
     Active Substance: TACROLIMUS
     Indication: Liver transplant
     Dosage: 0.5MG CAPSULE -TAKE 1 CAPSULE (0.5 MG TOTAL) BY MOUTH 2 (TWO) TIMES A DAY
  10. PreserVisionn AREDS [Concomitant]
     Indication: Product used for unknown indication
     Dosage: 1 CAP DAILY
  11. APIXABAN [Concomitant]
     Active Substance: APIXABAN
     Indication: Product used for unknown indication
     Dosage: 2.5MG TABLET - TAKE 1 TABLET (2.5 MG TOTAL) BY MOUTH 2 (TWO) TIMES A DAY
  12. ARTIFICIAL TEARS [Suspect]
     Active Substance: GLYCERIN\HYPROMELLOSES\POLYETHYLENE GLYCOL 400
     Indication: Product used for unknown indication
     Dosage: 1.4% OPHTHALMIC SOLUTION - ADMINISTER 1 DROP INTO BOTH EYES 4 (FOUR) TIMES A DAY AS NEEDED FOR DR...
  13. APIXABAN [Concomitant]
     Active Substance: APIXABAN
     Indication: Product used for unknown indication
     Dosage: 2.5MG TABLET - TAKE 1 TABLET (2.5 MG TOTAL) BY MOUTH 2 (TWO) TIMES A DAY
  14. CYANOCOBALAMIN [Concomitant]
     Active Substance: CYANOCOBALAMIN
     Indication: Product used for unknown indication
     Dosage: 500MCG TABLET- TAKE 500 MCG BY MOUTH EVERY MORNING
  15. FENOFIBRATE [Concomitant]
     Active Substance: FENOFIBRATE
     Indication: Product used for unknown indication
     Dosage: 160MG TABLET - TAKE 0.5 TABLETS (80 MG TOTAL) BY MOUTH NIGHTLY
  16. FINASTERIDE [Concomitant]
     Active Substance: FINASTERIDE
     Indication: Product used for unknown indication
     Dosage: 5MG TABLET- TAKE 1 TABLET (5 MG TOTAL) BY MOUTH DAILY.
  17. INSULIN ASPART [Concomitant]
     Active Substance: INSULIN ASPART
     Indication: Product used for unknown indication
     Dosage: 100 UNIT/ML SOLUTION-INJECT 10 UNITS UNDER THE SKIN 3 (THREE) TIMES A DAY
  18. LAMIVUDINE [Concomitant]
     Active Substance: LAMIVUDINE
     Indication: Product used for unknown indication
     Dosage: 100RNG TABLET- TAKE 1 TABLET (100 MG TOTAL) BY MOUTH EVERY OTHER
  19. LEVOTHYROXINE [Concomitant]
     Active Substance: LEVOTHYROXINE
     Indication: Thyroid disorder
     Dosage: TAKE 1 TABLET (50 MCG TOTAL) BY MOUTH BEFORE BREAKFAST INDICATIONS:
  20. TAMSULOSIN [Concomitant]
     Active Substance: TAMSULOSIN
     Indication: Product used for unknown indication
     Dosage: 0.4MG CAPSULE - TAKE 1 CAPSULE (0.4 MG TOTAL) BY MOUTH EVERY MORNING.
  21. SIMPONI ARIA [Concomitant]
     Active Substance: GOLIMUMAB
     Indication: Product used for unknown indication
     Dosage: 50MG/4ML SOLUTIONY
  22. OneTouch Delica [Concomitant]
     Indication: Product used for unknown indication
     Dosage: 33G MISC- USE 4X DAILY TO TEST BLOOD SUGAR FOR DIABETES ON INSULIN, DX CODE E11.22
  23. MIRALAX [Concomitant]
     Active Substance: POLYETHYLENE GLYCOL 3350
     Indication: Product used for unknown indication
     Dosage: 17G PACKET- TAKE 17 G BY MOUTH DAILY

REACTIONS (2)
  - Cataract [Unknown]
  - Localised infection [Unknown]
